FAERS Safety Report 17022870 (Version 1)
Quarter: 2019Q4

REPORT INFORMATION
  Report Type: Spontaneous
  Country: IL (occurrence: IL)
  Receive Date: 20191112
  Receipt Date: 20191112
  Transmission Date: 20200122
  Serious: Yes (Death, Life-Threatening, Other)
  Sender: FDA-Public Use
  Company Number: IL-ALEXION PHARMACEUTICALS INC.-A201917070

PATIENT
  Sex: Female

DRUGS (6)
  1. SOLIRIS [Suspect]
     Active Substance: ECULIZUMAB
     Indication: OFF LABEL USE
  2. SOLIRIS [Suspect]
     Active Substance: ECULIZUMAB
     Indication: BONE MARROW TRANSPLANT
  3. BICNU [Concomitant]
     Active Substance: CARMUSTINE
     Indication: TRANSPLANT
     Route: 065
  4. SOLIRIS [Suspect]
     Active Substance: ECULIZUMAB
     Indication: THROMBOTIC MICROANGIOPATHY
     Dosage: 900 MG, SINGLE
     Route: 065
     Dates: start: 20191025
  5. THIOTEPA. [Concomitant]
     Active Substance: THIOTEPA
     Indication: TRANSPLANT
     Route: 065
  6. FLUDARABINE [Concomitant]
     Active Substance: FLUDARABINE PHOSPHATE
     Indication: TRANSPLANT
     Route: 065

REACTIONS (2)
  - Off label use [Recovered/Resolved]
  - Ill-defined disorder [Fatal]

NARRATIVE: CASE EVENT DATE: 20191025
